FAERS Safety Report 6547144-6 (Version None)
Quarter: 2010Q1

REPORT INFORMATION
  Report Type: 
  Country: None (occurrence: None)
  Receive Date: 20100122
  Receipt Date: 20100120
  Transmission Date: 20100710
  Serious: Yes (Disabling)
  Sender: FDA-Public Use
  Company Number: CA-MERCK-1001CAN00177

PATIENT
  Sex: Female

DRUGS (1)
  1. PRINIVIL [Suspect]
     Route: 048

REACTIONS (3)
  - DRY SKIN [None]
  - OEDEMA PERIPHERAL [None]
  - RASH [None]
